FAERS Safety Report 7690892-5 (Version None)
Quarter: 2011Q3

REPORT INFORMATION
  Report Type: 
  Country: None (occurrence: None)
  Receive Date: 20110818
  Receipt Date: 20110818
  Transmission Date: 20111222
  Serious: Yes (Hospitalization)
  Sender: FDA-Public Use
  Company Number: None

PATIENT
  Age: 43 Year
  Sex: Male
  Weight: 95.254 kg

DRUGS (1)
  1. MCKESSON LUBRICATING JELLY (OTC) [Suspect]
     Indication: CATHETER PLACEMENT
     Dosage: 3 G
     Route: 066
     Dates: start: 20090101, end: 20110501

REACTIONS (3)
  - PAIN [None]
  - BLOOD URINE PRESENT [None]
  - URINARY TRACT INFECTION [None]
